FAERS Safety Report 11485629 (Version 1)
Quarter: 2015Q3

REPORT INFORMATION
  Report Type: Spontaneous
  Country: None (occurrence: None)
  Receive Date: 20150909
  Receipt Date: 20150909
  Transmission Date: 20151125
  Serious: Yes (Other)
  Sender: FDA-Public Use
  Company Number: None

PATIENT
  Age: 42 Year
  Sex: Male
  Weight: 87 kg

DRUGS (2)
  1. ONMEVEL (CONTAINING DICLOFENAC, MENTHYL SALICYLATE, MENTHOL, LINSEED OIL) [Suspect]
     Active Substance: DICLOFENAC\LINSEED OIL\MENTHOL\METHYL SALICYLATE
     Indication: PAIN MANAGEMENT
     Dosage: 2 SPRAYS
     Route: 061
  2. ONMEVEL (CONTAINING DICLOFENAC, MENTHYL SALICYLATE, MENTHOL, LINSEED OIL) [Suspect]
     Active Substance: DICLOFENAC\LINSEED OIL\MENTHOL\METHYL SALICYLATE
     Indication: LIGAMENT SPRAIN
     Dosage: 2 SPRAYS
     Route: 061

REACTIONS (2)
  - Rash pruritic [None]
  - Local swelling [None]

NARRATIVE: CASE EVENT DATE: 20150309
